FAERS Safety Report 6593760-5 (Version None)
Quarter: 2010Q1

REPORT INFORMATION
  Report Type: 
  Country: None (occurrence: None)
  Receive Date: 20100212
  Receipt Date: 20100205
  Transmission Date: 20100710
  Serious: Yes (Death)
  Sender: FDA-Public Use
  Company Number: WAES 1002USA01488

PATIENT
  Age: 88 Year
  Sex: Male

DRUGS (2)
  1. ZETIA [Suspect]
     Indication: HYPERCHOLESTEROLAEMIA
     Dosage: PO
     Route: 048
     Dates: start: 20070807
  2. DONEPEZIL HYDROCHLORIDE [Concomitant]

REACTIONS (4)
  - CEREBRAL INFARCTION [None]
  - DEMENTIA [None]
  - DISEASE PROGRESSION [None]
  - TREATMENT NONCOMPLIANCE [None]
